FAERS Safety Report 9776180 (Version 1)
Quarter: 2013Q4

REPORT INFORMATION
  Report Type: Spontaneous
  Country: TW (occurrence: None)
  Receive Date: 20131218
  Receipt Date: 20131218
  Transmission Date: 20140711
  Serious: Yes (Other)
  Sender: FDA-Public Use
  Company Number: 2013/217

PATIENT
  Age: 22 Year
  Sex: Male

DRUGS (3)
  1. OLANZAPINE [Suspect]
     Indication: AGITATION
  2. OLANZAPINE [Suspect]
     Indication: INTENTIONAL SELF-INJURY
  3. VALPROATE [Concomitant]

REACTIONS (9)
  - Grand mal convulsion [None]
  - Hyponatraemia [None]
  - Hypokalaemia [None]
  - Hypocalcaemia [None]
  - Hypomagnesaemia [None]
  - Blood glucose increased [None]
  - Polydipsia [None]
  - Water intoxication [None]
  - Electrolyte imbalance [None]
